FAERS Safety Report 9536184 (Version 2)
Quarter: 2013Q3

REPORT INFORMATION
  Report Type: Spontaneous
  Country: US (occurrence: None)
  Receive Date: 20130507
  Receipt Date: 20130724
  Transmission Date: 20140515
  Serious: Yes (Other)
  Sender: FDA-Public Use
  Company Number: PHEH2013US003234

PATIENT
  Age: 58 Year
  Sex: Male
  Weight: 66.5 kg

DRUGS (1)
  1. AFINITOR (RAD) TABLET, 10MG [Suspect]
     Indication: PANCREATIC NEUROENDOCRINE TUMOUR
     Route: 048

REACTIONS (2)
  - Pneumonitis [None]
  - Dyspnoea [None]
